FAERS Safety Report 6649164-X (Version None)
Quarter: 2010Q1

REPORT INFORMATION
  Report Type: 
  Country: None (occurrence: None)
  Receive Date: 20100324
  Receipt Date: 20100318
  Transmission Date: 20100710
  Serious: Yes (Other)
  Sender: FDA-Public Use
  Company Number: A0851488A

PATIENT
  Sex: Female
  Weight: 72 kg

DRUGS (7)
  1. SERETIDE [Suspect]
     Route: 055
     Dates: start: 20080101
  2. VACCINE [Concomitant]
     Indication: PROPHYLAXIS
     Route: 065
     Dates: start: 20100312, end: 20100312
  3. AVAMYS [Concomitant]
     Dosage: 4SPR PER DAY
     Route: 045
     Dates: start: 20100308
  4. DUOVENT [Concomitant]
     Dosage: 1PUFF FOUR TIMES PER DAY
     Dates: start: 20100308
  5. RIVOTRIL [Concomitant]
     Dosage: 1TAB PER DAY
     Route: 048
     Dates: start: 20080101
  6. LEVOFLOXACIN [Concomitant]
     Dosage: 1TAB TWICE PER DAY
     Route: 048
     Dates: start: 20100312
  7. LEVODROPROPIZINE [Concomitant]
     Dosage: 10ML TWICE PER DAY
     Dates: start: 20100312

REACTIONS (3)
  - ANGINA PECTORIS [None]
  - EXPIRED DRUG ADMINISTERED [None]
  - HEADACHE [None]
